FAERS Safety Report 8194294-7 (Version None)
Quarter: 2012Q1

REPORT INFORMATION
  Report Type: 
  Country: None (occurrence: None)
  Receive Date: 20120308
  Receipt Date: 20120305
  Transmission Date: 20120608
  Serious: No
  Sender: FDA-Public Use
  Company Number: US-PFIZER INC-2012059075

PATIENT
  Sex: Female
  Weight: 108.8 kg

DRUGS (5)
  1. DICLOFENAC [Concomitant]
     Dosage: UNK
  2. FLEXERIL [Concomitant]
     Dosage: UNK
  3. LYRICA [Suspect]
     Indication: PAIN
     Dosage: 500 MG, (300MG IN THE MORNING, 100MG IN THE AFTERNOON AND 100MG BEFORE BED TIME)
     Route: 048
  4. CYMBALTA [Concomitant]
     Dosage: UNK
  5. LYRICA [Suspect]
     Dosage: 300 MG, 1X/DAY
     Route: 048

REACTIONS (1)
  - PAIN [None]
